FAERS Safety Report 15374973 (Version 1)
Quarter: 2018Q3

REPORT INFORMATION
  Report Type: Spontaneous
  Country: PL (occurrence: PL)
  Receive Date: 20180912
  Receipt Date: 20180912
  Transmission Date: 20181010
  Serious: Yes (Other)
  Sender: FDA-Public Use
  Company Number: PL-AMGEN-POLSP2018122818

PATIENT
  Sex: Male
  Weight: 2.29 kg

DRUGS (4)
  1. ARANESP [Suspect]
     Active Substance: DARBEPOETIN ALFA
     Indication: EXPOSURE DURING PREGNANCY
     Dosage: UNK
     Route: 064
  2. TACROLIMUS. [Concomitant]
     Active Substance: TACROLIMUS
     Indication: EXPOSURE DURING PREGNANCY
     Dosage: UNK
  3. MYCOPHENOLATE MOFETIL. [Suspect]
     Active Substance: MYCOPHENOLATE MOFETIL
     Indication: EXPOSURE DURING PREGNANCY
     Dosage: UNK
     Route: 064
  4. PREDNISONE. [Concomitant]
     Active Substance: PREDNISONE
     Indication: EXPOSURE DURING PREGNANCY
     Dosage: UNK

REACTIONS (2)
  - Low birth weight baby [Unknown]
  - Premature delivery [Unknown]
